FAERS Safety Report 8883667 (Version 2)
Quarter: 2012Q4

REPORT INFORMATION
  Report Type: 
  Country: FR (occurrence: FR)
  Receive Date: 20121102
  Receipt Date: 20121120
  Transmission Date: 20130627
  Serious: Yes (Hospitalization)
  Sender: FDA-Public Use
  Company Number: FR-ROCHE-1150664

PATIENT
  Age: 26 Year
  Sex: Female

DRUGS (6)
  1. RIVOTRIL [Suspect]
     Indication: EPILEPSY
     Route: 048
     Dates: start: 20120914, end: 20121005
  2. XANAX [Interacting]
     Indication: PRODUCT USED FOR UNKNOWN INDICATION
     Route: 048
     Dates: start: 20120928, end: 20121005
  3. CAFFEINE\PHENOBARBITAL [Interacting]
     Indication: PRODUCT USED FOR UNKNOWN INDICATION
     Dosage: 50 mg and 15 mg once daily
     Route: 065
     Dates: end: 20121005
  4. LIORESAL [Interacting]
     Indication: PRODUCT USED FOR UNKNOWN INDICATION
     Route: 039
  5. PROZAC [Concomitant]
     Indication: PRODUCT USED FOR UNKNOWN INDICATION
     Route: 065
     Dates: end: 20121005
  6. DIANE [Concomitant]
     Indication: ACNE
     Route: 048

REACTIONS (2)
  - Drug interaction [Unknown]
  - Disturbance in attention [Recovered/Resolved]
